FAERS Safety Report 8962616 (Version 1)
Quarter: 2012Q4

REPORT INFORMATION
  Report Type: 
  Country: GB (occurrence: GB)
  Receive Date: 20121214
  Receipt Date: 20121214
  Transmission Date: 20130627
  Serious: Yes (Other)
  Sender: FDA-Public Use
  Company Number: GB-009507513-1205USA00360

PATIENT
  Age: 21 Year
  Sex: Female
  Weight: 63.6 kg

DRUGS (19)
  1. RIZATRIPTAN BENZOATE [Suspect]
     Route: 048
     Dates: start: 20120322, end: 20120323
  2. AMITRIPTYLINE HYDROCHLORIDE [Concomitant]
     Dates: start: 20120322
  3. BECLOMETASON CT [Concomitant]
     Dates: start: 20120109, end: 20120206
  4. CETIRIZINE HYDROCHLORIDE [Concomitant]
     Dates: start: 20120403
  5. CLENIL MODULITE [Concomitant]
     Dates: start: 20120308, end: 20120405
  6. ACETAMINOPHEN (+) CODEINE PHOSPHATE [Concomitant]
     Dates: start: 20120109
  7. CYCLIZINE [Concomitant]
     Dates: start: 20111222, end: 20120412
  8. DIAZEPAM [Concomitant]
     Dates: start: 20120105
  9. DOXYCYCLINE [Concomitant]
     Dates: start: 20120123, end: 20120130
  10. DULOXETINE HYDROCHLORIDE [Concomitant]
     Dates: start: 20111222
  11. LAMOTRIGINE [Concomitant]
     Dates: start: 20111222, end: 20120418
  12. MICONAZOLE [Concomitant]
     Dates: start: 20120403, end: 20120408
  13. MIGRALEVE (ACETAMINOPHEN (+) BUCLIZINE HYDROCHLORIDE (+) CODEINE PHOSP [Concomitant]
     Dates: start: 20111222, end: 20120406
  14. NYSTATIN [Concomitant]
     Dates: start: 20120123, end: 20120130
  15. OMEPRAZOLE [Concomitant]
     Dates: start: 20111222
  16. SUMATRIPTAN [Concomitant]
     Dosage: UNK
     Dates: start: 20120201, end: 20120202
  17. SUMATRIPTAN [Concomitant]
     Dosage: UNK
     Dates: start: 20120216, end: 20120217
  18. SUMATRIPTAN [Concomitant]
     Dosage: UNK
     Dates: start: 20120309, end: 20120310
  19. VENTOLIN (ALBUTEROL SULFATE) [Concomitant]
     Dates: start: 20120201

REACTIONS (2)
  - Glossitis [Recovered/Resolved]
  - Hypersensitivity [Recovered/Resolved]
